FAERS Safety Report 24400686 (Version 3)
Quarter: 2025Q2

REPORT INFORMATION
  Report Type: Spontaneous
  Country: US (occurrence: US)
  Receive Date: 20241006
  Receipt Date: 20250511
  Transmission Date: 20250716
  Serious: No
  Sender: SANOFI AVENTIS
  Company Number: US-SA-2024SA284981

PATIENT
  Age: 33 Year
  Sex: Female

DRUGS (2)
  1. DUPIXENT [Suspect]
     Active Substance: DUPILUMAB
     Indication: Eczema
     Route: 058
     Dates: start: 20240610, end: 20240610
  2. DUPIXENT [Suspect]
     Active Substance: DUPILUMAB
     Indication: Dermatitis atopic
     Dosage: 300 MG, QOW
     Route: 058
     Dates: start: 202406

REACTIONS (9)
  - Drug hypersensitivity [Unknown]
  - Stress [Unknown]
  - Sensitive skin [Unknown]
  - Herpes zoster [Unknown]
  - Skin burning sensation [Unknown]
  - Rash erythematous [Unknown]
  - Pruritus [Unknown]
  - Dermatitis atopic [Unknown]
  - Therapeutic response shortened [Unknown]

NARRATIVE: CASE EVENT DATE: 20240101
